FAERS Safety Report 21082275 (Version 1)
Quarter: 2022Q3

REPORT INFORMATION
  Report Type: Spontaneous
  Country: US (occurrence: None)
  Receive Date: 20220714
  Receipt Date: 20220714
  Transmission Date: 20221027
  Serious: Yes (Hospitalization)
  Sender: FDA-Public Use
  Company Number: None

PATIENT
  Age: 79 Year
  Sex: Male
  Weight: 142 kg

DRUGS (3)
  1. LISINOPRIL [Suspect]
     Active Substance: LISINOPRIL
     Indication: Cardiac failure congestive
     Dosage: OTHER FREQUENCY : AM;?
     Route: 048
     Dates: start: 20220302, end: 20220608
  2. LISINOPRIL [Suspect]
     Active Substance: LISINOPRIL
     Indication: Hypertension
  3. SPIRONOLACTONE [Suspect]
     Active Substance: SPIRONOLACTONE
     Indication: Cardiac failure congestive
     Dosage: OTHER FREQUENCY : AM;?
     Route: 048
     Dates: start: 20211103

REACTIONS (2)
  - Bradycardia [None]
  - Hyperkalaemia [None]

NARRATIVE: CASE EVENT DATE: 20220608
